FAERS Safety Report 14816547 (Version 2)
Quarter: 2018Q2

REPORT INFORMATION
  Report Type: Report from Study
  Country: CA (occurrence: CA)
  Receive Date: 20180426
  Receipt Date: 20180512
  Transmission Date: 20180711
  Serious: Yes (Death)
  Sender: FDA-Public Use
  Company Number: CA-HLSUS-2018-CA-000648

PATIENT
  Sex: Male

DRUGS (1)
  1. CLOZARIL [Suspect]
     Active Substance: CLOZAPINE
     Dosage: 100 MG TWICE DAILY AND 225 MG AT BEDTIME
     Route: 048
     Dates: start: 20120321

REACTIONS (2)
  - Death [Fatal]
  - Neurodegenerative disorder [Unknown]
